FAERS Safety Report 8023147-X (Version None)
Quarter: 2012Q1

REPORT INFORMATION
  Report Type: 
  Country: None (occurrence: None)
  Receive Date: 20120104
  Receipt Date: 20120104
  Transmission Date: 20120608
  Serious: Yes (Disabling)
  Sender: FDA-Public Use
  Company Number: FR-ABBOTT-11P-056-0877726-00

PATIENT
  Sex: Male

DRUGS (2)
  1. NIFLURIL [Suspect]
     Indication: NASOPHARYNGITIS
     Route: 048
     Dates: start: 20110930, end: 20111002
  2. CLARITHROMYCIN [Suspect]
     Indication: NASOPHARYNGITIS
     Route: 048
     Dates: start: 20110930, end: 20111002

REACTIONS (2)
  - DEAFNESS UNILATERAL [None]
  - TINNITUS [None]
